FAERS Safety Report 5076253-6 (Version None)
Quarter: 2006Q3

REPORT INFORMATION
  Report Type: 
  Country: None (occurrence: None)
  Receive Date: 20060807
  Receipt Date: 20060721
  Transmission Date: 20061208
  Serious: Yes (Hospitalization, Other)
  Sender: FDA-Public Use
  Company Number: S06-GER-02359-01

PATIENT
  Age: 16 Year
  Sex: Female

DRUGS (8)
  1. CITALOPRAM HYDROBROMIDE [Suspect]
     Indication: DEPRESSION
     Dosage: 1000 MG ONCE PO
     Route: 048
     Dates: start: 20060530, end: 20060530
  2. CITALOPRAM HYDROBROMIDE [Suspect]
     Indication: SUICIDAL IDEATION
     Dosage: 1000 MG ONCE PO
     Route: 048
     Dates: start: 20060530, end: 20060530
  3. CITALOPRAM HYDROBROMIDE [Suspect]
     Indication: DEPRESSION
     Dosage: 20 MG QD PO
     Route: 048
     Dates: start: 20060504
  4. CITALOPRAM HYDROBROMIDE [Suspect]
     Indication: SUICIDAL IDEATION
     Dosage: 20 MG QD PO
     Route: 048
     Dates: start: 20060504
  5. CITALOPRAM HYDROBROMIDE [Suspect]
     Indication: DEPRESSION
     Dosage: 10 MG QD PO
     Route: 048
     Dates: start: 20060425, end: 20060503
  6. CITALOPRAM HYDROBROMIDE [Suspect]
     Indication: SUICIDAL IDEATION
     Dosage: 10 MG QD PO
     Route: 048
     Dates: start: 20060425, end: 20060503
  7. TAVOR (LORAZEPAM) [Concomitant]
  8. IMAP (FLUSPIRILENE) [Concomitant]

REACTIONS (4)
  - BORDERLINE PERSONALITY DISORDER [None]
  - INTENTIONAL OVERDOSE [None]
  - INTENTIONAL SELF-INJURY [None]
  - SUICIDE ATTEMPT [None]
